FAERS Safety Report 21351550 (Version 2)
Quarter: 2022Q4

REPORT INFORMATION
  Report Type: Spontaneous
  Country: US (occurrence: None)
  Receive Date: 20220919
  Receipt Date: 20221018
  Transmission Date: 20230112
  Serious: No
  Sender: FDA-Public Use
  Company Number: 2022A315095

PATIENT
  Age: 24787 Day
  Sex: Female
  Weight: 86.2 kg

DRUGS (1)
  1. FASENRA [Suspect]
     Active Substance: BENRALIZUMAB
     Indication: Asthma
     Dosage: EVERY 4 WEEKS
     Route: 065
     Dates: start: 20220816

REACTIONS (5)
  - Syncope [Unknown]
  - Blood glucose decreased [Unknown]
  - Fall [Unknown]
  - Head injury [Unknown]
  - Joint injury [Unknown]

NARRATIVE: CASE EVENT DATE: 20220818
